FAERS Safety Report 7681086-8 (Version None)
Quarter: 2011Q3

REPORT INFORMATION
  Report Type: 
  Country: None (occurrence: None)
  Receive Date: 20110812
  Receipt Date: 20110809
  Transmission Date: 20111222
  Serious: No
  Sender: FDA-Public Use
  Company Number: US-PFIZER INC-2011146235

PATIENT
  Sex: Female

DRUGS (2)
  1. LIPITOR [Suspect]
     Indication: BLOOD CHOLESTEROL
     Dosage: 20MG, (1/2 TABLET OF 40 MG), UNK
  2. NIASPAN [Suspect]
     Indication: BLOOD CHOLESTEROL
     Dosage: UNK

REACTIONS (2)
  - BLOOD CHOLESTEROL ABNORMAL [None]
  - FLUSHING [None]
